FAERS Safety Report 7752782-9 (Version None)
Quarter: 2011Q3

REPORT INFORMATION
  Report Type: 
  Country: None (occurrence: None)
  Receive Date: 20110915
  Receipt Date: 20110906
  Transmission Date: 20111222
  Serious: Yes (Hospitalization, Disabling)
  Sender: FDA-Public Use
  Company Number: JP-ASTRAZENECA-2010SE43325

PATIENT
  Age: 25480 Day
  Sex: Male
  Weight: 62 kg

DRUGS (2)
  1. ROPIVACAINE HYDROCHLORIDE [Suspect]
     Indication: POSTOPERATIVE ANALGESIA
     Dosage: MIXTURE OF ANAPEINE 288 ML AND FENTANYL 12 ML / 10 MG EVERY HOUR
     Route: 008
     Dates: start: 20100907, end: 20100910
  2. FENTANYL [Suspect]
     Indication: POSTOPERATIVE ANALGESIA
     Dosage: MIXTURE OF ANAPEINE 288 ML AND FENTANYL 12 ML / 3 ML EVERY HOUR
     Route: 008
     Dates: start: 20100907, end: 20100907

REACTIONS (2)
  - BLOOD PRESSURE DECREASED [None]
  - NERVOUS SYSTEM DISORDER [None]
